FAERS Safety Report 6851768-6 (Version None)
Quarter: 2010Q3

REPORT INFORMATION
  Report Type: 
  Country: None (occurrence: None)
  Receive Date: 20100717
  Receipt Date: 20071025
  Transmission Date: 20110219
  Serious: No
  Sender: FDA-Public Use
  Company Number: US-PFIZER INC-2007092370

PATIENT
  Sex: Female
  Weight: 50 kg

DRUGS (8)
  1. CHANTIX [Suspect]
     Indication: SMOKING CESSATION THERAPY
     Dates: start: 20070901
  2. LYRICA [Concomitant]
  3. TEGRETOL [Concomitant]
  4. TOPROL-XL [Concomitant]
  5. ACETYLSALICYLIC ACID [Concomitant]
  6. CYANOCOBALAMIN [Concomitant]
  7. MULTI-VITAMINS [Concomitant]
  8. CALCIUM [Concomitant]

REACTIONS (2)
  - ABNORMAL DREAMS [None]
  - INSOMNIA [None]
